FAERS Safety Report 7656867-7 (Version None)
Quarter: 2011Q3

REPORT INFORMATION
  Report Type: 
  Country: None (occurrence: None)
  Receive Date: 20110804
  Receipt Date: 20110722
  Transmission Date: 20111222
  Serious: Yes (Other)
  Sender: FDA-Public Use
  Company Number: AR-SANOFI-AVENTIS-2011SA048065

PATIENT
  Age: 82 Year
  Sex: Female
  Weight: 76 kg

DRUGS (6)
  1. DRONEDARONE HCL [Suspect]
     Indication: ATRIAL FIBRILLATION
     Route: 048
     Dates: start: 20110524, end: 20110707
  2. FUROSEMIDE [Concomitant]
  3. ACENOCOUMAROL [Concomitant]
     Dosage: 5MG WEEKLY
  4. SIMVASTATIN [Concomitant]
  5. CARVEDIOL [Concomitant]
  6. DIGOXIN [Concomitant]

REACTIONS (1)
  - CARDIAC FAILURE [None]
